FAERS Safety Report 13973678 (Version 3)
Quarter: 2017Q4

REPORT INFORMATION
  Report Type: Spontaneous
  Country: JP (occurrence: JP)
  Receive Date: 20170915
  Receipt Date: 20171018
  Transmission Date: 20180321
  Serious: Yes (Hospitalization, Other)
  Sender: FDA-Public Use
  Company Number: JP-ABBVIE-17K-087-2090134-00

PATIENT
  Age: 67 Year
  Sex: Male

DRUGS (1)
  1. HUMIRA [Suspect]
     Active Substance: ADALIMUMAB
     Indication: PSORIATIC ARTHROPATHY
     Route: 058
     Dates: start: 2015, end: 20170113

REACTIONS (4)
  - Paradoxical drug reaction [Unknown]
  - Pustular psoriasis [Recovered/Resolved]
  - Pyrexia [Unknown]
  - Renal impairment [Unknown]

NARRATIVE: CASE EVENT DATE: 20170116
